FAERS Safety Report 19771416 (Version 3)
Quarter: 2021Q4

REPORT INFORMATION
  Report Type: Report from Study
  Country: US (occurrence: US)
  Receive Date: 20210831
  Receipt Date: 20211028
  Transmission Date: 20220304
  Serious: Yes (Other)
  Sender: FDA-Public Use
  Company Number: US-TAKEDA-2021TUS031902

PATIENT
  Age: 58 Year
  Sex: Female

DRUGS (1)
  1. VEDOLIZUMAB [Suspect]
     Active Substance: VEDOLIZUMAB
     Indication: Colitis ulcerative
     Dosage: 300 MILLIGRAM
     Route: 042
     Dates: start: 20210514

REACTIONS (20)
  - Colitis ulcerative [Recovering/Resolving]
  - Haemorrhage [Not Recovered/Not Resolved]
  - Lethargy [Unknown]
  - Adverse event [Unknown]
  - Joint swelling [Unknown]
  - Swelling face [Unknown]
  - Fluid retention [Unknown]
  - Asthenia [Unknown]
  - Dizziness [Unknown]
  - Balance disorder [Unknown]
  - Stress [Recovering/Resolving]
  - Depression [Not Recovered/Not Resolved]
  - Pain [Not Recovered/Not Resolved]
  - Mucous stools [Not Recovered/Not Resolved]
  - Abnormal faeces [Not Recovered/Not Resolved]
  - Road traffic accident [Not Recovered/Not Resolved]
  - Erythema [Unknown]
  - Constipation [Not Recovered/Not Resolved]
  - Arthralgia [Unknown]
  - Fatigue [Not Recovered/Not Resolved]

NARRATIVE: CASE EVENT DATE: 20210514
